FAERS Safety Report 8247864-1 (Version None)
Quarter: 2012Q1

REPORT INFORMATION
  Report Type: 
  Country: None (occurrence: None)
  Receive Date: 20120330
  Receipt Date: 20120326
  Transmission Date: 20120608
  Serious: Yes (Other)
  Sender: FDA-Public Use
  Company Number: US-JNJFOC-20120312701

PATIENT
  Sex: Female

DRUGS (2)
  1. STELARA [Suspect]
     Indication: PSORIASIS
     Route: 058
     Dates: start: 20110301
  2. LUNESTA [Concomitant]
     Indication: INSOMNIA
     Route: 048
     Dates: start: 20100101

REACTIONS (11)
  - TREMOR [None]
  - DRY SKIN [None]
  - NAIL DISORDER [None]
  - IRRITABLE BOWEL SYNDROME [None]
  - CONTUSION [None]
  - HEADACHE [None]
  - FLUSHING [None]
  - HYPERHIDROSIS [None]
  - ABDOMINAL DISCOMFORT [None]
  - FEELING HOT [None]
  - ERYTHEMA [None]
